FAERS Safety Report 9290155 (Version 2)
Quarter: 2013Q2

REPORT INFORMATION
  Report Type: Spontaneous
  Country: US (occurrence: US)
  Receive Date: 20130515
  Receipt Date: 20130627
  Transmission Date: 20140414
  Serious: Yes (Other)
  Sender: FDA-Public Use
  Company Number: US-PFIZER INC-2013146408

PATIENT
  Sex: Male

DRUGS (1)
  1. TORISEL [Suspect]
     Indication: NEOPLASM MALIGNANT
     Dosage: CYCLIC (13 TREATMENTS)

REACTIONS (3)
  - Renal disorder [Unknown]
  - Disease progression [Unknown]
  - Neoplasm malignant [Unknown]
